FAERS Safety Report 9009552 (Version 1)
Quarter: 2013Q1

REPORT INFORMATION
  Report Type: Spontaneous
  Country: US (occurrence: US)
  Receive Date: 20130110
  Receipt Date: 20130110
  Transmission Date: 20140127
  Serious: Yes (Other)
  Sender: FDA-Public Use
  Company Number: US-JNJFOC-20130102346

PATIENT
  Age: 71 Year
  Sex: Female
  Weight: 113.4 kg

DRUGS (17)
  1. DURAGESIC [Suspect]
     Indication: NEUROPATHY PERIPHERAL
     Route: 062
  2. DURAGESIC [Suspect]
     Indication: NEUROPATHY PERIPHERAL
     Route: 062
  3. DURAGESIC [Suspect]
     Indication: NEUROPATHY PERIPHERAL
     Route: 062
  4. DURAGESIC [Suspect]
     Indication: NEUROPATHY PERIPHERAL
     Route: 062
  5. LASIX [Concomitant]
     Indication: FLUID RETENTION
     Route: 048
  6. GLUCOPHAGE [Concomitant]
     Indication: DIABETES MELLITUS
     Dosage: 2250 TOTAL
     Route: 048
  7. VITAMIN D3 [Concomitant]
     Indication: VITAMIN SUPPLEMENTATION
     Route: 048
  8. GLYBURIDE [Concomitant]
     Indication: DIABETES MELLITUS
     Route: 048
  9. ALTACE [Concomitant]
     Indication: BLOOD PRESSURE
     Route: 048
  10. VITAMIN C [Concomitant]
     Indication: VITAMIN SUPPLEMENTATION
     Route: 048
  11. CENTRUM SILVER [Concomitant]
     Indication: HYPOVITAMINOSIS
     Route: 048
  12. VITAMINE E [Concomitant]
     Indication: PRODUCT USED FOR UNKNOWN INDICATION
     Route: 048
  13. ULTRAM [Concomitant]
     Indication: PAIN
     Route: 048
  14. CLONAZEPAM [Concomitant]
     Indication: NERVOUSNESS
     Route: 048
  15. WELCHOL [Concomitant]
     Indication: BLOOD CHOLESTEROL
     Dosage: 1875 TOTAL
     Route: 048
  16. NEURONTIN [Concomitant]
     Indication: NEUROPATHY PERIPHERAL
     Dosage: 2800MG/TABLET/400MG/ THREE TIMES A DAY/ORAL
     Route: 048
  17. ASPIRIN [Concomitant]
     Indication: PRODUCT USED FOR UNKNOWN INDICATION
     Route: 048

REACTIONS (6)
  - Diabetic neuropathy [Not Recovered/Not Resolved]
  - Visual impairment [Not Recovered/Not Resolved]
  - Adverse event [Unknown]
  - Drug diversion [Unknown]
  - Pain [Unknown]
  - Product packaging quantity issue [Unknown]
